FAERS Safety Report 7178806-8 (Version None)
Quarter: 2010Q4

REPORT INFORMATION
  Report Type: 
  Country: None (occurrence: None)
  Receive Date: 20101209
  Receipt Date: 20101123
  Transmission Date: 20110411
  Serious: Yes (Hospitalization)
  Sender: FDA-Public Use
  Company Number: 2010MA004774

PATIENT
  Age: 23 Year
  Sex: Male
  Weight: 54 kg

DRUGS (3)
  1. NAPROXEN AND ESOMEPRAZOLE MAGNESIUM DELAYED RELEASE TABLETS, 500MG/20M [Suspect]
     Dosage: X1;PO
     Route: 048
     Dates: start: 20101019, end: 20101026
  2. . [Concomitant]
  3. . [Concomitant]

REACTIONS (1)
  - OPTIC NEURITIS [None]
